FAERS Safety Report 6184591-9 (Version None)
Quarter: 2009Q2

REPORT INFORMATION
  Report Type: 
  Country: None (occurrence: None)
  Receive Date: 20090508
  Receipt Date: 20090429
  Transmission Date: 20091009
  Serious: Yes (Hospitalization)
  Sender: FDA-Public Use
  Company Number: PHHY2009NL16822

PATIENT
  Age: 76 Year
  Sex: Female

DRUGS (4)
  1. DICLOFENAC SODIUM [Suspect]
     Indication: MUSCULOSKELETAL PAIN
     Dosage: 75 MG, BID
  2. LITHIUM CARBONATE [Interacting]
     Dosage: 1000 MG, QD
  3. LITHIUM CARBONATE [Interacting]
     Dosage: 400 MG, QD
  4. FLUVOXAMINE MALEATE [Concomitant]
     Dosage: 50 MG, QD

REACTIONS (7)
  - CEREBELLAR SYNDROME [None]
  - DELIRIUM [None]
  - DISORIENTATION [None]
  - DRUG INTERACTION [None]
  - DRUG LEVEL INCREASED [None]
  - DRUG TOXICITY [None]
  - DYSARTHRIA [None]
